FAERS Safety Report 5650748-6 (Version None)
Quarter: 2008Q1

REPORT INFORMATION
  Report Type: 
  Country: None (occurrence: None)
  Receive Date: 20080305
  Receipt Date: 20080225
  Transmission Date: 20080703
  Serious: Yes (Disabling, Other)
  Sender: FDA-Public Use
  Company Number: PHNU2007DE02589

PATIENT
  Sex: Female

DRUGS (6)
  1. ZOMETA [Suspect]
     Indication: METASTASES TO BONE
     Dosage: 4 MG, QMO
     Route: 042
     Dates: start: 20050301, end: 20070201
  2. TAMOXIFEN [Concomitant]
     Dosage: 20 MG, QD
     Dates: start: 20021001, end: 20050401
  3. ARIMIDEX [Concomitant]
     Dosage: 1 MG, QD
     Route: 048
     Dates: start: 20050401
  4. TRAMADOL HCL [Concomitant]
     Dates: start: 20050201
  5. RANTUDIL [Concomitant]
     Dates: start: 20050201
  6. VALORON N /00628301/ [Concomitant]
     Dates: start: 20051001

REACTIONS (4)
  - GINGIVAL INFECTION [None]
  - ORAL SURGERY [None]
  - OSTEONECROSIS [None]
  - TOOTH EXTRACTION [None]
